FAERS Safety Report 14166807 (Version 1)
Quarter: 2017Q4

REPORT INFORMATION
  Report Type: Spontaneous
  Country: US (occurrence: US)
  Receive Date: 20171106
  Receipt Date: 20171106
  Transmission Date: 20180321
  Serious: No
  Sender: FDA-Public Use
  Company Number: None

PATIENT
  Sex: Male
  Weight: 74.25 kg

DRUGS (4)
  1. LITHIUM. [Concomitant]
     Active Substance: LITHIUM
  2. VITAMIN D3 [Concomitant]
     Active Substance: CHOLECALCIFEROL
  3. L-METHYLFOLATE [Concomitant]
     Active Substance: LEVOMEFOLIC ACID
  4. LATUDA [Suspect]
     Active Substance: LURASIDONE HYDROCHLORIDE
     Indication: BIPOLAR DISORDER
     Dosage: ?          QUANTITY:7 TABLET(S);?
     Route: 048
     Dates: start: 20171024, end: 20171106

REACTIONS (3)
  - Constipation [None]
  - Discomfort [None]
  - Restlessness [None]

NARRATIVE: CASE EVENT DATE: 20171105
